FAERS Safety Report 17258869 (Version 2)
Quarter: 2020Q1

REPORT INFORMATION
  Report Type: Spontaneous
  Country: GB (occurrence: GB)
  Receive Date: 20200110
  Receipt Date: 20200131
  Transmission Date: 20200409
  Serious: Yes (Death, Hospitalization)
  Sender: FDA-Public Use
  Company Number: NVSC2019GB076223

PATIENT
  Age: 8 Year
  Sex: Male
  Weight: 30 kg

DRUGS (1)
  1. KYMRIAH [Suspect]
     Active Substance: TISAGENLECLEUCEL
     Indication: ACUTE LYMPHOCYTIC LEUKAEMIA RECURRENT
     Dosage: UNK
     Route: 065
     Dates: start: 20191118

REACTIONS (10)
  - Headache [Unknown]
  - Hypotension [Unknown]
  - Malignant neoplasm progression [Fatal]
  - Facial paresis [Not Recovered/Not Resolved]
  - Muscular weakness [Recovered/Resolved]
  - Acute lymphocytic leukaemia recurrent [Fatal]
  - Cytokine release syndrome [Unknown]
  - Acute lymphocytic leukaemia [Fatal]
  - Cerebrovascular accident [Unknown]
  - Hemiparesis [Unknown]

NARRATIVE: CASE EVENT DATE: 20191215
